FAERS Safety Report 17625387 (Version 18)
Quarter: 2022Q3

REPORT INFORMATION
  Report Type: Report from Study
  Country: US (occurrence: US)
  Receive Date: 20200403
  Receipt Date: 20220927
  Transmission Date: 20221027
  Serious: Yes (Hospitalization, Other)
  Sender: FDA-Public Use
  Company Number: US-SHIRE-US202012189

PATIENT
  Age: 52 Year
  Sex: Female
  Weight: 88 kg

DRUGS (50)
  1. HUMAN IMMUNOGLOBULIN G [Suspect]
     Active Substance: HUMAN IMMUNOGLOBULIN G
     Indication: Immunodeficiency common variable
     Dosage: 30 GRAM, Q4WEEKS
     Route: 042
     Dates: start: 20181002
  2. HUMAN IMMUNOGLOBULIN G [Suspect]
     Active Substance: HUMAN IMMUNOGLOBULIN G
     Dosage: 30 GRAM, Q4WEEKS
     Route: 042
     Dates: start: 20181129
  3. HUMAN IMMUNOGLOBULIN G [Suspect]
     Active Substance: HUMAN IMMUNOGLOBULIN G
     Dosage: 30 GRAM, Q4WEEKS
     Route: 042
     Dates: start: 20181130
  4. HUMAN IMMUNOGLOBULIN G [Suspect]
     Active Substance: HUMAN IMMUNOGLOBULIN G
     Dosage: 30 GRAM
     Route: 065
     Dates: start: 20201218
  5. DIPHENHYDRAMINE [Concomitant]
     Active Substance: DIPHENHYDRAMINE
     Route: 065
  6. DIPHENHYDRAMINE HYDROCHLORIDE [Concomitant]
     Active Substance: DIPHENHYDRAMINE HYDROCHLORIDE
  7. ACETAMINOPHEN [Concomitant]
     Active Substance: ACETAMINOPHEN
     Route: 065
  8. LYRICA [Concomitant]
     Active Substance: PREGABALIN
     Route: 065
  9. NETTLE LEAF [Concomitant]
  10. SODIUM CHLORIDE [Concomitant]
     Active Substance: SODIUM CHLORIDE
     Route: 065
  11. EPINEPHRINE [Concomitant]
     Active Substance: EPINEPHRINE
     Dosage: 0.3 MG/0.3
     Route: 065
  12. TRAZODONE HCL [Concomitant]
     Active Substance: TRAZODONE HYDROCHLORIDE
  13. CALCIUM CITRATE\CHOLECALCIFEROL [Concomitant]
     Active Substance: CALCIUM CITRATE\CHOLECALCIFEROL
  14. PROPRANOLOL [Concomitant]
     Active Substance: PROPRANOLOL HYDROCHLORIDE
     Dosage: UNK, 2/WEEKGLUCOSAMINE CHONDROITIN MSM
     Route: 065
  15. OMEPRAZOLE [Concomitant]
     Active Substance: OMEPRAZOLE
     Indication: Colitis ulcerative
     Dosage: 40 MILLIGRAM, QD
     Route: 065
  16. ESTRADIOL [Concomitant]
     Active Substance: ESTRADIOL
     Dosage: UNK, 2/WEEK
     Route: 065
  17. VITAMIN D3 [Concomitant]
     Active Substance: CHOLECALCIFEROL
     Route: 065
  18. RELISTOR [Concomitant]
     Active Substance: METHYLNALTREXONE BROMIDE
     Route: 065
  19. ZOFRAN [Concomitant]
     Active Substance: ONDANSETRON HYDROCHLORIDE
     Indication: Nausea
     Dosage: 4 MILLIGRAM
     Route: 065
  20. SODIUM CHLORIDE [Concomitant]
     Active Substance: SODIUM CHLORIDE
     Route: 065
  21. MISOPROSTOL [Concomitant]
     Active Substance: MISOPROSTOL
     Route: 065
  22. OXYCODONE AND ACETAMINOPHEN [Concomitant]
     Active Substance: ACETAMINOPHEN\OXYCODONE HYDROCHLORIDE
     Route: 065
  23. CLONAZEPAM [Concomitant]
     Active Substance: CLONAZEPAM
     Route: 065
  24. Glucosamine chondroitin msm [Concomitant]
  25. TIZANIDINE [Concomitant]
     Active Substance: TIZANIDINE
     Indication: Muscle spasms
     Dosage: 4 MILLIGRAM, QID
     Route: 065
  26. LAMOTRIGINE [Concomitant]
     Active Substance: LAMOTRIGINE
     Route: 065
  27. HEPARIN [Concomitant]
     Active Substance: HEPARIN SODIUM
     Route: 065
  28. TRAZODONE HCL [Concomitant]
     Active Substance: TRAZODONE HYDROCHLORIDE
     Route: 065
  29. LORAZEPAM [Concomitant]
     Active Substance: LORAZEPAM
     Route: 065
  30. VITAMINS [Concomitant]
     Active Substance: VITAMINS
     Route: 065
  31. BUSPIRONE HCL [Concomitant]
     Active Substance: BUSPIRONE HYDROCHLORIDE
  32. MACRODANTIN [Concomitant]
     Active Substance: NITROFURANTOIN
     Route: 065
  33. TIZANIDINE HYDROCHLORIDE [Concomitant]
     Active Substance: TIZANIDINE HYDROCHLORIDE
  34. CARAFATE [Concomitant]
     Active Substance: SUCRALFATE
     Route: 065
  35. OXYCODONE [Concomitant]
     Active Substance: OXYCODONE
     Route: 065
  36. PROGESTERONE [Concomitant]
     Active Substance: PROGESTERONE
     Route: 065
  37. VRAYLAR [Concomitant]
     Active Substance: CARIPRAZINE
     Route: 065
  38. VIBERZI [Concomitant]
     Active Substance: ELUXADOLINE
     Route: 065
  39. LEXAPRO [Concomitant]
     Active Substance: ESCITALOPRAM OXALATE
     Route: 065
  40. HYDROXYZINE [Concomitant]
     Active Substance: HYDROXYZINE HYDROCHLORIDE
     Route: 065
  41. LAMICTAL [Concomitant]
     Active Substance: LAMOTRIGINE
     Indication: Mood altered
     Dosage: 200 MILLIGRAM
     Route: 065
  42. XANAX [Concomitant]
     Active Substance: ALPRAZOLAM
     Indication: Anxiety
     Dosage: 5 MILLIGRAM, TID
     Route: 065
  43. MS CONTIN [Concomitant]
     Active Substance: MORPHINE SULFATE
     Indication: Pain
     Dosage: 15 MILLIGRAM, TID
     Route: 065
  44. PERCOCET [Concomitant]
     Active Substance: ACETAMINOPHEN\OXYCODONE HYDROCHLORIDE
     Indication: Pain
     Dosage: 4 TIMES A DAY
     Route: 065
  45. INDERAL [Concomitant]
     Active Substance: PROPRANOLOL HYDROCHLORIDE
     Indication: Migraine
     Dosage: 80 UNK, QD
     Route: 065
  46. LYRICA [Concomitant]
     Active Substance: PREGABALIN
  47. GLUCOSAMINE COMPLEX PLUS MSM [Concomitant]
  48. PROPRANOLOL HYDROCHLORIDE [Concomitant]
     Active Substance: PROPRANOLOL HYDROCHLORIDE
  49. ONDANSETRON [Concomitant]
     Active Substance: ONDANSETRON
  50. PROMETHAZINE HYDROCHLORIDE [Concomitant]
     Active Substance: PROMETHAZINE HYDROCHLORIDE
     Route: 065

REACTIONS (44)
  - Vomiting [Recovered/Resolved]
  - Impaired gastric emptying [Unknown]
  - Neuropathy peripheral [Unknown]
  - Lower limb fracture [Unknown]
  - Cystitis [Recovering/Resolving]
  - Limb injury [Unknown]
  - Fall [Recovered/Resolved]
  - Neuralgia [Unknown]
  - Fluid retention [Not Recovered/Not Resolved]
  - Peripheral swelling [Unknown]
  - Hypoaesthesia [Unknown]
  - Gait disturbance [Unknown]
  - Condition aggravated [Unknown]
  - Feeling abnormal [Recovering/Resolving]
  - Haematoma [Unknown]
  - Dehydration [Unknown]
  - Weight increased [Unknown]
  - Tooth infection [Unknown]
  - Malabsorption [Unknown]
  - Gastric bypass [Unknown]
  - Candida infection [Unknown]
  - Infusion related reaction [Unknown]
  - Gastrointestinal disorder [Unknown]
  - Neck pain [Unknown]
  - Adverse event [Unknown]
  - Weight decreased [Unknown]
  - Abdominal discomfort [Unknown]
  - Feeding disorder [Unknown]
  - COVID-19 [Unknown]
  - Seasonal allergy [Unknown]
  - Bone pain [Unknown]
  - Fungal infection [Unknown]
  - Oedema peripheral [Unknown]
  - Migraine [Unknown]
  - Nausea [Recovering/Resolving]
  - Diarrhoea [Unknown]
  - Headache [Unknown]
  - Back pain [Unknown]
  - Fatigue [Unknown]
  - Pain in extremity [Unknown]
  - Blood pressure increased [Unknown]
  - Arthralgia [Unknown]
  - Pain [Unknown]
  - Incorrect product administration duration [Unknown]

NARRATIVE: CASE EVENT DATE: 20220808
